FAERS Safety Report 5669381-5 (Version None)
Quarter: 2008Q1

REPORT INFORMATION
  Report Type: 
  Country: None (occurrence: None)
  Receive Date: 20080317
  Receipt Date: 20080306
  Transmission Date: 20080703
  Serious: Yes (Other)
  Sender: FDA-Public Use
  Company Number: PHHY2008JP03052

PATIENT
  Age: 60 Year
  Sex: Male

DRUGS (1)
  1. ZADITEN [Suspect]
     Indication: SEASONAL ALLERGY
     Route: 048
     Dates: start: 20080305

REACTIONS (3)
  - CHEST PAIN [None]
  - COUGH [None]
  - RESPIRATION ABNORMAL [None]
